FAERS Safety Report 7691032-9 (Version None)
Quarter: 2011Q3

REPORT INFORMATION
  Report Type: 
  Country: None (occurrence: None)
  Receive Date: 20110818
  Receipt Date: 20110808
  Transmission Date: 20111222
  Serious: Yes (Death, Other)
  Sender: FDA-Public Use
  Company Number: IT-GENENTECH-292502

PATIENT

DRUGS (3)
  1. MABTHERA [Suspect]
     Indication: NON-HODGKIN'S LYMPHOMA
     Dosage: 375 MG/M2, 1/WEEK
     Route: 042
  2. BORTEZOMIB [Suspect]
     Dosage: 1.6 MG/M2, 4/WEEK
     Route: 040
  3. BORTEZOMIB [Suspect]
     Indication: NON-HODGKIN'S LYMPHOMA
     Dosage: 1.6 MG/M2, 1/WEEK
     Route: 040

REACTIONS (14)
  - INTERSTITIAL LUNG DISEASE [None]
  - NEUROTOXICITY [None]
  - PNEUMONIA BACTERIAL [None]
  - PNEUMONITIS [None]
  - PLEURAL EFFUSION [None]
  - DIARRHOEA [None]
  - MULTI-ORGAN FAILURE [None]
  - GASTROINTESTINAL CARCINOMA [None]
  - CONSTIPATION [None]
  - FUNGAL INFECTION [None]
  - THROMBOCYTOPENIA [None]
  - SEPSIS [None]
  - NEUTROPENIA [None]
  - VIRAL INFECTION [None]
